FAERS Safety Report 8527939 (Version 3)
Quarter: 2012Q4

REPORT INFORMATION
  Report Type: 
  Country: US (occurrence: US)
  Receive Date: 20120424
  Receipt Date: 20120917
  Transmission Date: 20130627
  Serious: Yes (Hospitalization)
  Sender: FDA-Public Use
  Company Number: US-BAYER-2012-037890

PATIENT
  Age: 36 Year
  Sex: Female
  Weight: 81.63 kg

DRUGS (3)
  1. YASMIN [Suspect]
     Indication: CONTRACEPTION
     Dosage: UNK
     Dates: start: 200404, end: 200410
  2. EFFEXOR XR [Concomitant]
     Dosage: 75 mg, UNK
     Route: 048
     Dates: start: 20031014, end: 20031121
  3. MAXALT [Concomitant]
     Dosage: 10 mg, UNK
     Route: 048
     Dates: start: 20030915

REACTIONS (2)
  - Thrombosis [None]
  - Injury [None]
